FAERS Safety Report 6405324-4 (Version None)
Quarter: 2009Q4

REPORT INFORMATION
  Report Type: 
  Country: None (occurrence: None)
  Receive Date: 20091019
  Receipt Date: 20091012
  Transmission Date: 20100525
  Serious: Yes (Life-Threatening)
  Sender: FDA-Public Use
  Company Number: CN-TYCO HEALTHCARE/MALLINCKRODT-T200901901

PATIENT
  Age: 56 Year
  Sex: Male
  Weight: 64 kg

DRUGS (1)
  1. OPTIRAY 350 [Suspect]
     Indication: COMPUTERISED TOMOGRAM
     Dosage: 5 ML/S
     Route: 042
     Dates: start: 20091010, end: 20091010

REACTIONS (3)
  - CONVULSION [None]
  - DYSPNOEA [None]
  - HEART RATE INCREASED [None]
